FAERS Safety Report 25455922 (Version 1)
Quarter: 2025Q2

REPORT INFORMATION
  Report Type: Spontaneous
  Country: US (occurrence: US)
  Receive Date: 20250619
  Receipt Date: 20250619
  Transmission Date: 20250717
  Serious: No
  Sender: IPSEN BIOPHARMACEUTICALS, INC.
  Company Number: US-IPSEN Group, Research and Development-2025-14285

PATIENT
  Age: 74 Year
  Sex: Female

DRUGS (1)
  1. IQIRVO [Suspect]
     Active Substance: ELAFIBRANOR
     Indication: Biliary cirrhosis
     Dosage: 80 MG DAILY
     Route: 048
     Dates: start: 202505

REACTIONS (2)
  - Off label use [Unknown]
  - Discomfort [Unknown]

NARRATIVE: CASE EVENT DATE: 20250501
